FAERS Safety Report 7851158-3 (Version None)
Quarter: 2011Q4

REPORT INFORMATION
  Report Type: 
  Country: None (occurrence: None)
  Receive Date: 20111026
  Receipt Date: 20111019
  Transmission Date: 20120403
  Serious: Yes (Other)
  Sender: FDA-Public Use
  Company Number: GB-MYLANLABS-2011S1019250

PATIENT
  Age: 64 Year
  Sex: Female
  Weight: 108 kg

DRUGS (10)
  1. TRAMADOL HCL [Concomitant]
     Indication: PRODUCT USED FOR UNKNOWN INDICATION
     Route: 048
  2. CIPROFLOXACIN [Suspect]
     Indication: OSTEOMYELITIS
     Route: 048
     Dates: start: 20110629, end: 20110719
  3. CIPROFLOXACIN [Suspect]
     Indication: ARTHRITIS INFECTIVE
     Route: 048
     Dates: start: 20110629, end: 20110719
  4. CUBICIN [Suspect]
     Indication: ARTHRITIS INFECTIVE
     Dates: start: 20110630, end: 20110719
  5. FUROSEMIDE [Concomitant]
     Indication: PRODUCT USED FOR UNKNOWN INDICATION
     Route: 048
     Dates: start: 20110623
  6. ROPINIROLE [Concomitant]
     Indication: PRODUCT USED FOR UNKNOWN INDICATION
     Route: 048
     Dates: start: 20110623
  7. CUBICIN [Suspect]
     Indication: OSTEOMYELITIS
     Dates: start: 20110630, end: 20110719
  8. CITALOPRAM HYDROBROMIDE [Concomitant]
     Indication: PRODUCT USED FOR UNKNOWN INDICATION
     Route: 048
  9. DOMPERIDONE [Concomitant]
     Indication: PRODUCT USED FOR UNKNOWN INDICATION
     Route: 048
     Dates: start: 20110623
  10. ACETAMINOPHEN [Concomitant]
     Indication: PRODUCT USED FOR UNKNOWN INDICATION
     Route: 048
     Dates: start: 20110623

REACTIONS (2)
  - NEUROPATHY PERIPHERAL [None]
  - PERIPHERAL NERVE LESION [None]
